FAERS Safety Report 4632499-X (Version None)
Quarter: 2005Q2

REPORT INFORMATION
  Report Type: 
  Country: None (occurrence: None)
  Receive Date: 20050411
  Receipt Date: 20050401
  Transmission Date: 20051028
  Serious: Yes (Other)
  Sender: FDA-Public Use
  Company Number: FR-ABBOTT-05P-056-0296106-00

PATIENT
  Age: 30 Year
  Sex: Male

DRUGS (2)
  1. DEPAKENE [Suspect]
     Indication: DRUG USE FOR UNKNOWN INDICATION
  2. ANTIRETROVIRAL THERAPY [Concomitant]
     Indication: HIV INFECTION
     Route: 065

REACTIONS (1)
  - PLEURAL FIBROSIS [None]
